FAERS Safety Report 19498601 (Version 1)
Quarter: 2021Q3

REPORT INFORMATION
  Report Type: Spontaneous
  Country: JP (occurrence: JP)
  Receive Date: 20210706
  Receipt Date: 20210706
  Transmission Date: 20211014
  Serious: Yes (Death, Other)
  Sender: FDA-Public Use
  Company Number: JP-PFIZER INC-2021082509

PATIENT
  Age: 8 Decade

DRUGS (1)
  1. LORBRENA [Suspect]
     Active Substance: LORLATINIB
     Indication: LUNG NEOPLASM MALIGNANT
     Dosage: 100 MG, DAILY
     Route: 048

REACTIONS (8)
  - Bradyphrenia [Unknown]
  - Slow speech [Unknown]
  - Neoplasm progression [Fatal]
  - Product use issue [Unknown]
  - Respiratory failure [Fatal]
  - Off label use [Unknown]
  - Tumour thrombosis [Fatal]
  - Aphasia [Unknown]

NARRATIVE: CASE EVENT DATE: 20201221
